FAERS Safety Report 25242697 (Version 1)
Quarter: 2025Q2

REPORT INFORMATION
  Report Type: Report from Study
  Country: US (occurrence: US)
  Receive Date: 20250427
  Receipt Date: 20250427
  Transmission Date: 20250717
  Serious: Yes (Hospitalization, Other)
  Sender: ABBVIE
  Company Number: US-ABBVIE-6197538

PATIENT
  Age: 54 Year
  Sex: Female

DRUGS (3)
  1. RINVOQ [Suspect]
     Active Substance: UPADACITINIB
     Indication: Psoriatic arthropathy
     Route: 048
  2. RINVOQ [Suspect]
     Active Substance: UPADACITINIB
     Indication: Psoriatic arthropathy
     Route: 048
     Dates: start: 20241101, end: 20250122
  3. RINVOQ [Suspect]
     Active Substance: UPADACITINIB
     Indication: Psoriatic arthropathy
     Dosage: STRENGTH: 15 MG?LAST ADMIN DATE: 2025
     Route: 048
     Dates: start: 20250303

REACTIONS (5)
  - Cellulitis [Recovered/Resolved]
  - Cyst [Not Recovered/Not Resolved]
  - Inappropriate schedule of product administration [Unknown]
  - Tendon pain [Not Recovered/Not Resolved]
  - Chronic kidney disease [Not Recovered/Not Resolved]

NARRATIVE: CASE EVENT DATE: 20250101
